FAERS Safety Report 10996972 (Version 1)
Quarter: 2015Q2

REPORT INFORMATION
  Report Type: Spontaneous
  Country: US (occurrence: US)
  Receive Date: 20150408
  Receipt Date: 20150408
  Transmission Date: 20150821
  Serious: Yes (Disabling, Other)
  Sender: FDA-Public Use
  Company Number: US-THROMBOGENICS NV-SPO-2013-0538

PATIENT
  Age: 66 Year
  Sex: Female

DRUGS (1)
  1. JETREA [Suspect]
     Active Substance: OCRIPLASMIN
     Indication: VITREOUS ADHESIONS
     Dosage: 0.125 MG, ONE TIME DOSE
     Route: 031
     Dates: start: 20130212, end: 20130212

REACTIONS (20)
  - Photophobia [Unknown]
  - Metamorphopsia [Unknown]
  - Non-infectious endophthalmitis [Unknown]
  - Vision blurred [Unknown]
  - Iris adhesions [Unknown]
  - Macular fibrosis [Unknown]
  - Ocular hyperaemia [Unknown]
  - Visual acuity reduced [Recovered/Resolved]
  - Macular hole [Unknown]
  - Visual impairment [Unknown]
  - Hypopyon [Unknown]
  - Anterior chamber inflammation [Recovered/Resolved]
  - Corneal opacity [Unknown]
  - Visual acuity reduced [Unknown]
  - Corneal deposits [Unknown]
  - Photopsia [Unknown]
  - Headache [Unknown]
  - Eye pain [Unknown]
  - Vitreous floaters [Unknown]
  - Vitreous opacities [Unknown]

NARRATIVE: CASE EVENT DATE: 20130212
